FAERS Safety Report 5447406-X (Version None)
Quarter: 2007Q3

REPORT INFORMATION
  Report Type: 
  Country: None (occurrence: None)
  Receive Date: 20070910
  Receipt Date: 20070830
  Transmission Date: 20080115
  Serious: Yes (Hospitalization, Disabling)
  Sender: FDA-Public Use
  Company Number: AU-AMGEN-US188608

PATIENT
  Sex: Female

DRUGS (9)
  1. DARBEPOETIN ALFA [Suspect]
     Indication: ANAEMIA OF MALIGNANT DISEASE
     Route: 058
     Dates: start: 20060622
  2. NEULASTA [Suspect]
     Indication: CHEMOTHERAPY
     Route: 058
     Dates: start: 20060609, end: 20060721
  3. ADRIAMYCIN PFS [Concomitant]
     Route: 042
     Dates: start: 20060721
  4. CYCLOPHOSPHAMIDE [Concomitant]
     Route: 042
     Dates: start: 20060721
  5. ENOXAPARIN SODIUM [Concomitant]
     Route: 058
     Dates: start: 20060726, end: 20060726
  6. ANZEMET [Concomitant]
  7. CIPROXIN [Concomitant]
  8. MAXOLON [Concomitant]
     Route: 048
     Dates: start: 20060726, end: 20060726
  9. LORAZEPAM [Concomitant]
     Route: 060
     Dates: start: 20060726, end: 20060726

REACTIONS (1)
  - PALMAR-PLANTAR ERYTHRODYSAESTHESIA SYNDROME [None]
